FAERS Safety Report 15587119 (Version 1)
Quarter: 2018Q4

REPORT INFORMATION
  Report Type: Spontaneous
  Country: JP (occurrence: JP)
  Receive Date: 20181105
  Receipt Date: 20181105
  Transmission Date: 20190205
  Serious: Yes (Hospitalization)
  Sender: FDA-Public Use
  Company Number: JP-GLAXOSMITHKLINE-JP2018JPN197117

PATIENT
  Age: 36 Year
  Sex: Female

DRUGS (1)
  1. FLOLAN [Suspect]
     Active Substance: EPOPROSTENOL SODIUM
     Indication: PULMONARY ARTERIAL HYPERTENSION
     Dosage: 85 NG/KG/MIN, UNK
     Route: 042

REACTIONS (6)
  - Malaise [Unknown]
  - Nausea [Unknown]
  - Adrenocorticotropic hormone deficiency [Unknown]
  - Arthralgia [Unknown]
  - Malnutrition [Unknown]
  - Therapeutic response decreased [Unknown]
